FAERS Safety Report 16466309 (Version 1)
Quarter: 2019Q2

REPORT INFORMATION
  Report Type: Report from Study
  Country: None (occurrence: US)
  Receive Date: 20190622
  Receipt Date: 20190622
  Transmission Date: 20190711
  Serious: Yes (Other)
  Sender: FDA-Public Use
  Company Number: US-ABBVIE-17K-163-1907289-00

PATIENT
  Age: 68 Year
  Sex: Female

DRUGS (2)
  1. HUMIRA [Suspect]
     Active Substance: ADALIMUMAB
     Indication: PSORIATIC ARTHROPATHY
     Route: 058
     Dates: start: 201609
  2. HUMIRA [Suspect]
     Active Substance: ADALIMUMAB
     Route: 058

REACTIONS (12)
  - Sciatica [Unknown]
  - Urinary tract infection [Not Recovered/Not Resolved]
  - Myalgia [Unknown]
  - Joint stiffness [Not Recovered/Not Resolved]
  - Glaucoma [Not Recovered/Not Resolved]
  - Injection site haemorrhage [Recovered/Resolved]
  - Cataract [Recovering/Resolving]
  - Musculoskeletal discomfort [Unknown]
  - Nasopharyngitis [Unknown]
  - Urticaria [Not Recovered/Not Resolved]
  - Musculoskeletal stiffness [Not Recovered/Not Resolved]
  - Injection site bruising [Unknown]

NARRATIVE: CASE EVENT DATE: 201609
